FAERS Safety Report 8052120-0 (Version None)
Quarter: 2012Q1

REPORT INFORMATION
  Report Type: 
  Country: None (occurrence: None)
  Receive Date: 20120118
  Receipt Date: 20120112
  Transmission Date: 20120608
  Serious: Yes (Other)
  Sender: FDA-Public Use
  Company Number: US-PFIZER INC-2012010101

PATIENT
  Sex: Female
  Weight: 65.76 kg

DRUGS (3)
  1. ACETAMINOPHEN [Concomitant]
     Dosage: UNK
  2. EFFEXOR XR [Suspect]
     Indication: DEPRESSION
     Dosage: 150 MG, 1X/DAY
     Route: 048
     Dates: start: 20110917
  3. EFFEXOR XR [Suspect]
     Indication: SUICIDAL IDEATION

REACTIONS (4)
  - RASH [None]
  - FOLLICULITIS [None]
  - INFECTION [None]
  - DERMATITIS CONTACT [None]
